FAERS Safety Report 4312107-8 (Version None)
Quarter: 2004Q1

REPORT INFORMATION
  Report Type: 
  Country: None (occurrence: None)
  Receive Date: 20040303
  Receipt Date: 20010613
  Transmission Date: 20041129
  Serious: Yes (Death)
  Sender: FDA-Public Use
  Company Number: AT-JNJFOC-20031204213

PATIENT
  Age: 73 Year
  Sex: Female

DRUGS (39)
  1. REMICADE [Suspect]
     Indication: RHEUMATOID ARTHRITIS
     Dosage: SEE IMAGE
     Route: 042
     Dates: start: 19971118
  2. REMICADE [Suspect]
     Indication: RHEUMATOID ARTHRITIS
     Dosage: SEE IMAGE
     Route: 042
     Dates: start: 19971202
  3. REMICADE [Suspect]
     Indication: RHEUMATOID ARTHRITIS
     Dosage: SEE IMAGE
     Route: 042
     Dates: start: 19971230
  4. REMICADE [Suspect]
     Indication: RHEUMATOID ARTHRITIS
     Dosage: SEE IMAGE
     Route: 042
     Dates: start: 19980224
  5. REMICADE [Suspect]
     Indication: RHEUMATOID ARTHRITIS
     Dosage: SEE IMAGE
     Route: 042
     Dates: start: 19980421
  6. REMICADE [Suspect]
     Indication: RHEUMATOID ARTHRITIS
     Dosage: SEE IMAGE
     Route: 042
     Dates: start: 19980616
  7. REMICADE [Suspect]
     Indication: RHEUMATOID ARTHRITIS
     Dosage: SEE IMAGE
     Route: 042
     Dates: start: 19980811
  8. REMICADE [Suspect]
     Indication: RHEUMATOID ARTHRITIS
     Dosage: SEE IMAGE
     Route: 042
     Dates: start: 19981006
  9. REMICADE [Suspect]
     Indication: RHEUMATOID ARTHRITIS
     Dosage: SEE IMAGE
     Route: 042
     Dates: start: 19981201
  10. REMICADE [Suspect]
     Indication: RHEUMATOID ARTHRITIS
     Dosage: SEE IMAGE
     Route: 042
     Dates: start: 19990127
  11. REMICADE [Suspect]
     Indication: RHEUMATOID ARTHRITIS
     Dosage: SEE IMAGE
     Route: 042
     Dates: start: 19990323
  12. REMICADE [Suspect]
     Indication: RHEUMATOID ARTHRITIS
     Dosage: SEE IMAGE
     Route: 042
     Dates: start: 19990518
  13. REMICADE [Suspect]
     Indication: RHEUMATOID ARTHRITIS
     Dosage: SEE IMAGE
     Route: 042
     Dates: start: 19990713
  14. REMICADE [Suspect]
     Indication: RHEUMATOID ARTHRITIS
     Dosage: SEE IMAGE
     Route: 042
     Dates: start: 19990907
  15. REMICADE [Suspect]
     Indication: RHEUMATOID ARTHRITIS
     Dosage: SEE IMAGE
     Route: 042
     Dates: start: 19991102
  16. REMICADE [Suspect]
     Indication: RHEUMATOID ARTHRITIS
     Dosage: SEE IMAGE
     Route: 042
     Dates: start: 20001108
  17. REMICADE [Suspect]
     Indication: RHEUMATOID ARTHRITIS
     Dosage: SEE IMAGE
     Route: 042
     Dates: start: 20010208
  18. REMICADE [Suspect]
  19. PLACEBO (PLACEBO) LYOPHILIZED POWDER [Suspect]
     Dosage: INTRAVENOUS
     Route: 042
     Dates: start: 19980127
  20. PLACEBO (PLACEBO) LYOPHILIZED POWDER [Suspect]
     Dosage: INTRAVENOUS
     Route: 042
     Dates: start: 19980324
  21. PLACEBO (PLACEBO) LYOPHILIZED POWDER [Suspect]
     Dosage: INTRAVENOUS
     Route: 042
     Dates: start: 19980518
  22. PLACEBO (PLACEBO) LYOPHILIZED POWDER [Suspect]
     Dosage: INTRAVENOUS
     Route: 042
     Dates: start: 19980908
  23. PLACEBO (PLACEBO) LYOPHILIZED POWDER [Suspect]
     Dosage: INTRAVENOUS
     Route: 042
     Dates: start: 19981103
  24. PLACEBO (PLACEBO) LYOPHILIZED POWDER [Suspect]
     Dosage: INTRAVENOUS
     Route: 042
     Dates: start: 19981228
  25. PLACEBO (PLACEBO) LYOPHILIZED POWDER [Suspect]
     Dosage: INTRAVENOUS
     Route: 042
     Dates: start: 19990223
  26. PLACEBO (PLACEBO) LYOPHILIZED POWDER [Suspect]
     Dosage: INTRAVENOUS
     Route: 042
     Dates: start: 19990420
  27. PLACEBO (PLACEBO) LYOPHILIZED POWDER [Suspect]
     Dosage: INTRAVENOUS
     Route: 042
     Dates: start: 19990615
  28. PLACEBO (PLACEBO) LYOPHILIZED POWDER [Suspect]
     Dosage: INTRAVENOUS
     Route: 042
     Dates: start: 19990810
  29. PLACEBO (PLACEBO) LYOPHILIZED POWDER [Suspect]
     Dosage: INTRAVENOUS
     Route: 042
     Dates: start: 19991012
  30. METHOTREXATE [Concomitant]
  31. SINTROM [Concomitant]
  32. TERBONIN RETARD (GINKGO TREE LEAVES EXTRACT) [Concomitant]
  33. MOLSIDOLAT (MOLSIDOMINE) [Concomitant]
  34. LASIX [Concomitant]
  35. ENALAPRIL MALEATE [Concomitant]
  36. ULSAL (RANITIDINE HYDROCHLORIDE) [Concomitant]
  37. FOLIC ACID [Concomitant]
  38. INSUMAN HOECHST (INSUMAN) [Concomitant]
  39. VOLTAREN [Concomitant]

REACTIONS (2)
  - CARDIAC FAILURE [None]
  - SUDDEN CARDIAC DEATH [None]
